FAERS Safety Report 8547848-X (Version None)
Quarter: 2012Q3

REPORT INFORMATION
  Report Type: 
  Country: None (occurrence: None)
  Receive Date: 20120727
  Receipt Date: 20120706
  Transmission Date: 20120928
  Serious: No
  Sender: FDA-Public Use
  Company Number: US-ASTRAZENECA-2012SE28206

PATIENT
  Age: 56 Year
  Sex: Female
  Weight: 72.6 kg

DRUGS (14)
  1. SEROQUEL XR [Suspect]
     Route: 048
  2. CLONAZEPAM [Concomitant]
  3. SEROQUEL XR [Suspect]
     Indication: SLEEP DISORDER
     Route: 048
     Dates: start: 20120301
  4. SEROQUEL XR [Suspect]
     Route: 048
  5. PRECISE TYLENOL [Concomitant]
  6. PAIN PATCH [Concomitant]
  7. SEROQUEL XR [Suspect]
     Indication: BIPOLAR I DISORDER
     Route: 048
     Dates: start: 20120301
  8. VITAMIN [Concomitant]
  9. NERVE PILLS [Concomitant]
  10. CAPZASIN HP CREAM [Concomitant]
  11. SEROQUEL XR [Suspect]
     Route: 048
  12. VICODIN [Concomitant]
     Indication: PAIN
  13. SEROQUEL XR [Suspect]
     Route: 048
  14. CREAMS [Concomitant]

REACTIONS (9)
  - INSOMNIA [None]
  - DRUG INEFFECTIVE FOR UNAPPROVED INDICATION [None]
  - TENDONITIS [None]
  - BURSITIS [None]
  - MYOSITIS [None]
  - DRUG INEFFECTIVE [None]
  - ARTHRITIS [None]
  - OFF LABEL USE [None]
  - DRUG DISPENSING ERROR [None]
